FAERS Safety Report 8009160-7 (Version None)
Quarter: 2011Q4

REPORT INFORMATION
  Report Type: 
  Country: None (occurrence: None)
  Receive Date: 20111227
  Receipt Date: 20111222
  Transmission Date: 20120403
  Serious: Yes (Death, Hospitalization)
  Sender: FDA-Public Use
  Company Number: PHHY2011DE103488

PATIENT
  Sex: Male
  Weight: 95 kg

DRUGS (3)
  1. CALCIUM CHANNEL BLOCKERS [Concomitant]
     Indication: HYPERTENSION
  2. AFINITOR [Suspect]
     Indication: RENAL CELL CARCINOMA
     Dosage: 10 MG, PER DAY
     Route: 048
     Dates: start: 20110923, end: 20111201
  3. BETA BLOCKING AGENTS [Concomitant]
     Indication: HYPERTENSION

REACTIONS (6)
  - GENERAL PHYSICAL HEALTH DETERIORATION [None]
  - DYSPNOEA [None]
  - COUGH [None]
  - MALIGNANT ASCITES [None]
  - PRODUCTIVE COUGH [None]
  - MALIGNANT PLEURAL EFFUSION [None]
